FAERS Safety Report 10147019 (Version 1)
Quarter: 2014Q2

REPORT INFORMATION
  Report Type: Spontaneous
  Country: JP (occurrence: JP)
  Receive Date: 20140501
  Receipt Date: 20140501
  Transmission Date: 20141212
  Serious: Yes (Death)
  Sender: FDA-Public Use
  Company Number: JP-GLAXOSMITHKLINE-B0990002A

PATIENT
  Age: 60 Year
  Sex: Male

DRUGS (1)
  1. VOTRIENT 200MG [Suspect]
     Indication: ANGIOSARCOMA
     Dosage: 800MG PER DAY
     Route: 048
     Dates: start: 201401

REACTIONS (1)
  - Gastrointestinal haemorrhage [Fatal]
